FAERS Safety Report 18052570 (Version 2)
Quarter: 2025Q2

REPORT INFORMATION
  Report Type: Spontaneous
  Country: ES (occurrence: ES)
  Receive Date: 20200722
  Receipt Date: 20250428
  Transmission Date: 20250717
  Serious: Yes (Other)
  Sender: AUROBINDO
  Company Number: ES-MLMSERVICE-20200707-2361457-1

PATIENT
  Age: 46 Year
  Sex: Male

DRUGS (9)
  1. OXALIPLATIN [Suspect]
     Active Substance: OXALIPLATIN
     Indication: Adenocarcinoma of colon
     Route: 065
     Dates: start: 2016
  2. OXALIPLATIN [Suspect]
     Active Substance: OXALIPLATIN
     Indication: Rectal adenocarcinoma
  3. FLUOROURACIL [Suspect]
     Active Substance: FLUOROURACIL
     Indication: Product used for unknown indication
     Route: 065
     Dates: start: 2016
  4. VECTIBIX [Suspect]
     Active Substance: PANITUMUMAB
     Indication: Rectal adenocarcinoma
     Route: 065
     Dates: start: 2016
  5. PANITUMUMAB [Concomitant]
     Active Substance: PANITUMUMAB
     Indication: Adenocarcinoma of colon
     Route: 065
     Dates: start: 2016
  6. FLUOROURACIL [Concomitant]
     Active Substance: FLUOROURACIL
     Indication: Adenocarcinoma of colon
     Route: 065
  7. FLUOROURACIL [Concomitant]
     Active Substance: FLUOROURACIL
     Indication: Rectal adenocarcinoma
     Dosage: 225 MILLIGRAM/SQ. METER, ONCE A DAY,7 D/WK,CYCLE
     Route: 065
     Dates: start: 2016, end: 2016
  8. LEUCOVORIN [Concomitant]
     Active Substance: LEUCOVORIN\LEUCOVORIN CALCIUM
     Indication: Adenocarcinoma of colon
     Route: 065
     Dates: start: 2016
  9. LEUCOVORIN [Concomitant]
     Active Substance: LEUCOVORIN\LEUCOVORIN CALCIUM
     Indication: Rectal adenocarcinoma

REACTIONS (2)
  - Polyneuropathy [Unknown]
  - Skin toxicity [Unknown]
